FAERS Safety Report 9116821 (Version 1)
Quarter: 2013Q1

REPORT INFORMATION
  Report Type: Report from Study
  Country: CA (occurrence: CA)
  Receive Date: 20130225
  Receipt Date: 20130225
  Transmission Date: 20140127
  Serious: Yes (Death)
  Sender: FDA-Public Use
  Company Number: CA-JNJFOC-20130212127

PATIENT
  Sex: Male
  Weight: 102.4 kg

DRUGS (5)
  1. REMICADE [Suspect]
     Indication: ANKYLOSING SPONDYLITIS
     Route: 042
     Dates: start: 20120412, end: 20130219
  2. LYRICA [Concomitant]
     Route: 065
  3. CYMBALTA [Concomitant]
     Route: 065
  4. MTX [Concomitant]
     Route: 065
  5. TYLENOL 3 [Concomitant]
     Route: 065

REACTIONS (2)
  - Death [Fatal]
  - Back pain [Unknown]
